FAERS Safety Report 15300630 (Version 1)
Quarter: 2018Q3

REPORT INFORMATION
  Report Type: Other
  Country: US (occurrence: US)
  Receive Date: 20180821
  Receipt Date: 20180821
  Transmission Date: 20181010
  Serious: No
  Sender: FDA-Public Use
  Company Number: US-MERZ NORTH AMERICA, INC.-18MRZ-00425

PATIENT
  Sex: Female

DRUGS (1)
  1. XEOMIN [Suspect]
     Active Substance: INCOBOTULINUMTOXINA
     Indication: SKIN COSMETIC PROCEDURE
     Dosage: 15 UNITS
     Dates: start: 20180712, end: 20180712

REACTIONS (4)
  - Pruritus [Unknown]
  - Swelling [Unknown]
  - Erythema [Unknown]
  - Nodule [Not Recovered/Not Resolved]
